FAERS Safety Report 16446861 (Version 1)
Quarter: 2019Q2

REPORT INFORMATION
  Report Type: Report from Study
  Country: FI (occurrence: FI)
  Receive Date: 20190618
  Receipt Date: 20190618
  Transmission Date: 20190711
  Serious: Yes (Hospitalization)
  Sender: FDA-Public Use
  Company Number: FI-EISAI MEDICAL RESEARCH-EC-2019-057877

PATIENT
  Age: 65 Year
  Sex: Female
  Weight: 68.5 kg

DRUGS (18)
  1. BISOPROLOL [Concomitant]
     Active Substance: BISOPROLOL
  2. EMGESAN [Concomitant]
     Active Substance: MAGNESIUM HYDROXIDE
  3. EVEROLIMUS. [Suspect]
     Active Substance: EVEROLIMUS
     Indication: RENAL CELL CARCINOMA
     Route: 048
     Dates: start: 20181122
  4. FRAGMIN [Concomitant]
     Active Substance: DALTEPARIN SODIUM
  5. PRIMPERAN [Concomitant]
     Active Substance: METOCLOPRAMIDE HYDROCHLORIDE
  6. SOMAC [Concomitant]
     Active Substance: PANTOPRAZOLE SODIUM
  7. ZANIDIP [Concomitant]
     Active Substance: LERCANIDIPINE HYDROCHLORIDE
  8. ELOCON [Concomitant]
     Active Substance: MOMETASONE FUROATE
  9. IMODIUM [Concomitant]
     Active Substance: LOPERAMIDE HYDROCHLORIDE
  10. VOLTAREN FORTE [Concomitant]
     Active Substance: DICLOFENAC SODIUM
  11. PARACETAMOL [Concomitant]
     Active Substance: ACETAMINOPHEN
  12. LENVATINIB [Suspect]
     Active Substance: LENVATINIB
     Indication: RENAL CELL CARCINOMA
     Route: 048
     Dates: start: 20181122, end: 20190128
  13. SIMVASTATIN. [Concomitant]
     Active Substance: SIMVASTATIN
  14. COZAAR COMP FORTE [Concomitant]
     Active Substance: HYDROCHLOROTHIAZIDE\LOSARTAN POTASSIUM
  15. MINISUN [Concomitant]
     Active Substance: CHOLECALCIFEROL
  16. LENVATINIB [Suspect]
     Active Substance: LENVATINIB
     Route: 048
     Dates: start: 20190129
  17. OVESTIN [Concomitant]
     Active Substance: ESTRIOL
  18. GEFILUS BASIC [Concomitant]

REACTIONS (1)
  - Pyrexia [Not Recovered/Not Resolved]

NARRATIVE: CASE EVENT DATE: 20190613
